FAERS Safety Report 6965895-6 (Version None)
Quarter: 2010Q3

REPORT INFORMATION
  Report Type: 
  Country: None (occurrence: None)
  Receive Date: 20100903
  Receipt Date: 20100824
  Transmission Date: 20110219
  Serious: Yes (Other)
  Sender: FDA-Public Use
  Company Number: US-ABBOTT-10P-163-0666236-00

PATIENT
  Age: 58 Year
  Sex: Female
  Weight: 80.812 kg

DRUGS (11)
  1. HUMIRA [Suspect]
     Indication: PSORIATIC ARTHROPATHY
  2. HUMIRA [Suspect]
     Indication: PSORIASIS
     Dates: start: 20100624
  3. NEXIUM [Concomitant]
     Indication: BARRETT'S OESOPHAGUS
     Route: 048
  4. NEXIUM [Concomitant]
     Indication: GASTROOESOPHAGEAL REFLUX DISEASE
  5. LEVOTHYROXINE [Concomitant]
     Indication: PRODUCT USED FOR UNKNOWN INDICATION
     Route: 048
  6. DIOVAN HCT [Concomitant]
     Indication: PRODUCT USED FOR UNKNOWN INDICATION
     Dosage: 3/25 MG TABLET DAILY
     Route: 048
  7. CRESTOR [Concomitant]
     Indication: PRODUCT USED FOR UNKNOWN INDICATION
     Route: 048
  8. ZOLPIDEM [Concomitant]
     Indication: PRODUCT USED FOR UNKNOWN INDICATION
     Route: 048
  9. CELEBREX [Concomitant]
     Indication: PRODUCT USED FOR UNKNOWN INDICATION
     Dosage: 1 TO 2 TIMES DAILY
  10. LORAZEPAM [Concomitant]
     Indication: ANXIETY
     Route: 048
  11. TYLENOL W/ CODEINE NO. 3 [Concomitant]
     Indication: ARTHRITIS
     Dosage: 3 TIMES A DAY AS NEEDED

REACTIONS (3)
  - HAEMORRHOIDS [None]
  - POOR QUALITY DRUG ADMINISTERED [None]
  - RECTAL DISCHARGE [None]
